FAERS Safety Report 4973196-0 (Version None)
Quarter: 2006Q2

REPORT INFORMATION
  Report Type: 
  Country: None (occurrence: None)
  Receive Date: 20060414
  Receipt Date: 20050802
  Transmission Date: 20061013
  Serious: Yes (Hospitalization, Other)
  Sender: FDA-Public Use
  Company Number: US-MERCK-0508USA00885

PATIENT
  Age: 78 Year
  Sex: Female
  Weight: 68 kg

DRUGS (19)
  1. VIOXX [Suspect]
     Indication: BACK PAIN
     Route: 048
     Dates: start: 20011001, end: 20041001
  2. VIOXX [Suspect]
     Route: 048
     Dates: start: 20010101, end: 20040901
  3. TYLENOL (CAPLET) [Concomitant]
     Route: 065
  4. K-DUR 10 [Concomitant]
     Route: 065
  5. RESTORIL [Concomitant]
     Route: 065
  6. MAGNESIUM SULFATE [Concomitant]
     Route: 048
  7. QUININE [Concomitant]
     Route: 048
  8. CARDURA [Concomitant]
     Route: 048
  9. LOZOL [Concomitant]
     Route: 048
  10. PRAVACHOL [Concomitant]
     Route: 048
  11. INDAPAMIDE [Concomitant]
     Route: 048
  12. ROCALTROL [Concomitant]
     Route: 047
  13. CALCIUM (UNSPECIFIED) AND VITAMIN D (UNSPECIFIED) [Concomitant]
     Route: 047
  14. COZAAR [Concomitant]
     Route: 048
  15. SYNTHROID [Concomitant]
     Route: 047
  16. NOVO-HYDROXYZIN [Concomitant]
     Route: 065
  17. ONE-A-DAY ESSENTIAL VITAMINS [Concomitant]
     Route: 048
  18. VITAMIN B COMPLEX [Concomitant]
     Route: 047
  19. ASCORBIC ACID [Concomitant]
     Route: 047

REACTIONS (23)
  - ARTERIOSCLEROSIS [None]
  - ATRIOVENTRICULAR BLOCK FIRST DEGREE [None]
  - BLOOD PRESSURE INCREASED [None]
  - CARDIAC FAILURE CONGESTIVE [None]
  - CEREBROVASCULAR ACCIDENT [None]
  - CHEST PAIN [None]
  - CORONARY ARTERY DISEASE [None]
  - DEHYDRATION [None]
  - DIARRHOEA [None]
  - DYSPNOEA [None]
  - HEADACHE [None]
  - HYPERTENSION [None]
  - HYPOAESTHESIA [None]
  - HYPOKALAEMIA [None]
  - HYPOTHYROIDISM [None]
  - MUSCLE SPASMS [None]
  - MYOCARDIAL INFARCTION [None]
  - NON-CARDIAC CHEST PAIN [None]
  - PRESCRIBED OVERDOSE [None]
  - THROMBOSIS [None]
  - TRANSIENT ISCHAEMIC ATTACK [None]
  - UPPER RESPIRATORY TRACT INFECTION [None]
  - VITAMIN D DEFICIENCY [None]
